FAERS Safety Report 17240021 (Version 1)
Quarter: 2020Q1

REPORT INFORMATION
  Report Type: Spontaneous
  Country: ES (occurrence: ES)
  Receive Date: 20200107
  Receipt Date: 20200107
  Transmission Date: 20200409
  Serious: Yes (Hospitalization)
  Sender: FDA-Public Use
  Company Number: ES-AUROBINDO-AUR-APL-2020-000644

PATIENT
  Age: 38 Year
  Sex: Male

DRUGS (3)
  1. OMEPRAZOLE. [Suspect]
     Active Substance: OMEPRAZOLE
     Indication: ARTHRALGIA
     Dosage: 20 MILLIGRAM, ONCE A DAY
     Route: 048
     Dates: start: 201907, end: 20190717
  2. NOLOTIL [Concomitant]
     Indication: ARTHRALGIA
     Dosage: 575 MILLIGRAM, 3 TIMES A DAY
     Route: 048
     Dates: start: 201907, end: 20190717
  3. IBUPROFEN. [Suspect]
     Active Substance: IBUPROFEN
     Indication: ARTHRALGIA
     Dosage: 600 MILLIGRAM, 3 TIMES A DAY
     Route: 048
     Dates: start: 201907, end: 20190717

REACTIONS (2)
  - Enteritis [Recovered/Resolved]
  - Hypertransaminasaemia [Unknown]

NARRATIVE: CASE EVENT DATE: 20190717
